FAERS Safety Report 6371358-1 (Version None)
Quarter: 2009Q3

REPORT INFORMATION
  Report Type: 
  Country: None (occurrence: None)
  Receive Date: 20090923
  Receipt Date: 20090917
  Transmission Date: 20100115
  Serious: Yes (Other)
  Sender: FDA-Public Use
  Company Number: US-JNJFOC-20090905741

PATIENT

DRUGS (1)
  1. RISPERDAL CONSTA [Suspect]
     Indication: ACCIDENTAL EXPOSURE
     Route: 030

REACTIONS (3)
  - ACCIDENTAL NEEDLE STICK [None]
  - EXPOSURE TO CONTAMINATED DEVICE [None]
  - PRODUCT QUALITY ISSUE [None]
